FAERS Safety Report 14754763 (Version 1)
Quarter: 2018Q2

REPORT INFORMATION
  Report Type: Spontaneous
  Country: GB (occurrence: GB)
  Receive Date: 20180413
  Receipt Date: 20180413
  Transmission Date: 20180711
  Serious: Yes (Other)
  Sender: FDA-Public Use
  Company Number: GB-ALKEM LABORATORIES LIMITED-GB-ALKEM-2018-02046

PATIENT
  Age: 1 Week
  Sex: Female
  Weight: 3 kg

DRUGS (2)
  1. CEFALEXIN [Suspect]
     Active Substance: CEPHALEXIN
     Dosage: UNK
     Route: 063
  2. METRONIDAZOLE. [Suspect]
     Active Substance: METRONIDAZOLE
     Dosage: UNK
     Route: 063

REACTIONS (5)
  - Abdominal pain [Unknown]
  - Oral candidiasis [Unknown]
  - Exposure via breast milk [Unknown]
  - Haematochezia [Unknown]
  - Lactose intolerance [Unknown]
